FAERS Safety Report 9255149 (Version 3)
Quarter: 2013Q2

REPORT INFORMATION
  Report Type: Spontaneous
  Country: JP (occurrence: JP)
  Receive Date: 20130425
  Receipt Date: 20130522
  Transmission Date: 20140414
  Serious: Yes (Other)
  Sender: FDA-Public Use
  Company Number: JP-009507513-1304JPN013177

PATIENT
  Age: 70 Year
  Sex: Male

DRUGS (5)
  1. GASTER [Suspect]
     Dosage: UNK
     Route: 048
  2. PLAVIX [Suspect]
     Dosage: UNK
     Route: 048
  3. HARNAL [Concomitant]
     Dosage: UNK
  4. MUCOSTA [Concomitant]
     Dosage: UNK
     Route: 048
  5. BLOPRESS [Concomitant]
     Route: 048

REACTIONS (1)
  - Drug-induced liver injury [Recovered/Resolved]
